FAERS Safety Report 10409590 (Version 1)
Quarter: 2014Q3

REPORT INFORMATION
  Report Type: Spontaneous
  Country: US (occurrence: US)
  Receive Date: 20140826
  Receipt Date: 20140826
  Transmission Date: 20150326
  Serious: No
  Sender: FDA-Public Use
  Company Number: US-BAUSCH-BL-2013-005323

PATIENT
  Age: 24 Year
  Sex: Male

DRUGS (2)
  1. CROMOLYN SODIUM NASAL SOLUTION USP [Suspect]
     Active Substance: CROMOLYN SODIUM
     Indication: HYPERSENSITIVITY
     Dosage: 1 SPRAY; ONCE; RIGHT NOSTRIL
     Route: 045
     Dates: start: 20130926, end: 20130926
  2. CROMOLYN SODIUM NASAL SOLUTION USP [Suspect]
     Active Substance: CROMOLYN SODIUM
     Dosage: 1 SPRAY; ONCE; LEFT NOSTRIL
     Route: 045
     Dates: start: 20130926, end: 20130926

REACTIONS (1)
  - Epistaxis [Recovered/Resolved]

NARRATIVE: CASE EVENT DATE: 20130926
